FAERS Safety Report 19939532 (Version 5)
Quarter: 2022Q3

REPORT INFORMATION
  Report Type: Report from Study
  Country: CA (occurrence: CA)
  Receive Date: 20211011
  Receipt Date: 20220713
  Transmission Date: 20221027
  Serious: Yes (Hospitalization)
  Sender: FDA-Public Use
  Company Number: CA-BAUSCH-BL-2021-020672

PATIENT
  Age: 60 Year
  Sex: Male
  Weight: 108.96 kg

DRUGS (8)
  1. SILIQ [Suspect]
     Active Substance: BRODALUMAB
     Indication: Psoriasis
     Dosage: 210MG/1.5 ML, WEEK 0
     Route: 058
     Dates: start: 20210511, end: 20210511
  2. SILIQ [Suspect]
     Active Substance: BRODALUMAB
     Dosage: 210MG/1.5 ML, RE-INDUCTION (WEEK 1, 2 AND 3)
     Route: 058
     Dates: start: 20210601, end: 20210615
  3. SILIQ [Suspect]
     Active Substance: BRODALUMAB
     Dosage: 210MG/1.5 ML, EVERY TWO WEEK
     Route: 058
     Dates: start: 20210629, end: 202107
  4. SILIQ [Suspect]
     Active Substance: BRODALUMAB
     Dosage: 210MG/1.5 ML, ONCE A MONTH
     Route: 058
     Dates: start: 202107
  5. SILIQ [Suspect]
     Active Substance: BRODALUMAB
     Dosage: 210MG/1.5 ML, EVERY TWO WEEK
     Route: 058
     Dates: start: 20210914
  6. SILIQ [Suspect]
     Active Substance: BRODALUMAB
     Dosage: 210MG/1.5 ML, EVERY TWO WEEK
     Route: 058
     Dates: start: 20211223
  7. SILIQ [Suspect]
     Active Substance: BRODALUMAB
     Dosage: 210MG/1.5 ML, EVERY TWO WEEK
     Route: 058
     Dates: start: 20220526
  8. ELIQUIS [Suspect]
     Active Substance: APIXABAN
     Indication: Anticoagulant therapy
     Route: 065
     Dates: start: 2018

REACTIONS (13)
  - Pulmonary oedema [Unknown]
  - Blood pressure abnormal [Recovered/Resolved]
  - Skin ulcer [Recovered/Resolved]
  - Angiocardiogram [Unknown]
  - Dyspnoea [Recovered/Resolved]
  - Palpitations [Recovered/Resolved]
  - Malaise [Unknown]
  - Dizziness [Recovered/Resolved]
  - Headache [Recovered/Resolved]
  - Arthralgia [Recovered/Resolved]
  - Product dose omission issue [Unknown]
  - Off label use [Unknown]
  - Therapy interrupted [Unknown]

NARRATIVE: CASE EVENT DATE: 20210501
